FAERS Safety Report 15127665 (Version 2)
Quarter: 2019Q2

REPORT INFORMATION
  Report Type: Spontaneous
  Country: None (occurrence: US)
  Receive Date: 20180710
  Receipt Date: 20190425
  Transmission Date: 20190711
  Serious: No
  Sender: FDA-Public Use
  Company Number: US-ALLERGAN-1828612US

PATIENT
  Age: 9 Year
  Sex: Female

DRUGS (1)
  1. TRIPTORELIN PAMOATE - BP [Suspect]
     Active Substance: TRIPTORELIN PAMOATE
     Indication: PRECOCIOUS PUBERTY
     Dosage: 22.5 MG, QD
     Route: 065
     Dates: start: 20180507, end: 20180507

REACTIONS (4)
  - Off label use [Unknown]
  - Needle issue [Unknown]
  - Product use complaint [Unknown]
  - Wrong technique in device usage process [Unknown]
